FAERS Safety Report 8937838 (Version 2)
Quarter: 2012Q4

REPORT INFORMATION
  Report Type: 
  Country: US (occurrence: US)
  Receive Date: 20121121
  Receipt Date: 20121212
  Transmission Date: 20130627
  Serious: Yes (Death)
  Sender: FDA-Public Use
  Company Number: US-ASTELLAS-1108567

PATIENT
  Sex: Female

DRUGS (5)
  1. TARCEVA [Suspect]
     Indication: MALIGNANT RESPIRATORY TRACT NEOPLASM
     Route: 048
  2. CARBOPLATIN [Concomitant]
     Route: 065
     Dates: start: 20050505
  3. CARBOPLATIN [Concomitant]
     Route: 065
     Dates: start: 20050527
  4. TAXOL [Concomitant]
     Route: 065
     Dates: start: 20050505
  5. TAXOL [Concomitant]
     Route: 065
     Dates: start: 20050527

REACTIONS (1)
  - Disease progression [Fatal]
